FAERS Safety Report 19507198 (Version 1)
Quarter: 2021Q3

REPORT INFORMATION
  Report Type: Spontaneous
  Country: US (occurrence: US)
  Receive Date: 20210708
  Receipt Date: 20210708
  Transmission Date: 20211014
  Serious: Yes (Other)
  Sender: FDA-Public Use
  Company Number: US-PFIZER INC-2021791361

PATIENT
  Age: 35 Year
  Sex: Male
  Weight: 85.7 kg

DRUGS (1)
  1. HEPARIN SODIUM. [Suspect]
     Active Substance: HEPARIN SODIUM
     Dosage: UNK (25000 UNITS/500ML INFUSION (50 UNITS/ML))

REACTIONS (1)
  - Deep vein thrombosis [Unknown]
